FAERS Safety Report 5756973-8 (Version None)
Quarter: 2008Q2

REPORT INFORMATION
  Report Type: 
  Country: None (occurrence: None)
  Receive Date: 20080529
  Receipt Date: 20080516
  Transmission Date: 20081010
  Serious: Yes (Other)
  Sender: FDA-Public Use
  Company Number: 234652J08USA

PATIENT
  Age: 40 Year
  Sex: Female
  Weight: 108.8633 kg

DRUGS (4)
  1. REBIF [Suspect]
     Indication: MULTIPLE SCLEROSIS
     Dosage: 44 MCG, 3 IN 1 WEEKS, SUBCUTANEOUS
     Route: 058
     Dates: start: 20061117
  2. BLOOD PRESSURE MEDICATION (ANTIHYPERTENSIVES) [Concomitant]
  3. HIGH CHOLESTEROL MEDICATION (OTHER CHOLESTEROL AND TRIGLYERIDE REDUCER [Concomitant]
  4. PROVIGIL [Concomitant]

REACTIONS (4)
  - ABDOMINAL PAIN UPPER [None]
  - GALLBLADDER DISORDER [None]
  - NAUSEA [None]
  - RETCHING [None]
